FAERS Safety Report 5110145-9 (Version None)
Quarter: 2006Q3

REPORT INFORMATION
  Report Type: 
  Country: None (occurrence: None)
  Receive Date: 20060921
  Receipt Date: 20060823
  Transmission Date: 20061208
  Serious: Yes (Hospitalization, Other)
  Sender: FDA-Public Use
  Company Number: 2006UW16719

PATIENT
  Age: 23854 Day
  Sex: Male
  Weight: 54 kg

DRUGS (12)
  1. IRESSA [Suspect]
     Indication: TONGUE NEOPLASM MALIGNANT STAGE UNSPECIFIED
     Route: 048
     Dates: start: 20050411, end: 20050523
  2. IRESSA [Suspect]
     Dosage: MAINTENANCE DOSE
     Route: 048
     Dates: start: 20050524, end: 20060806
  3. RADIATION THERAPY [Suspect]
     Indication: TONGUE NEOPLASM MALIGNANT STAGE UNSPECIFIED
     Dosage: 7440 CGY/62 FX BID
     Dates: start: 20050411, end: 20050523
  4. CISPLATIN [Suspect]
     Indication: TONGUE NEOPLASM MALIGNANT STAGE UNSPECIFIED
     Dates: start: 20050411, end: 20050415
  5. CISPLATIN [Suspect]
     Dates: start: 20050502, end: 20050506
  6. FLUOROURACIL [Suspect]
     Indication: TONGUE NEOPLASM MALIGNANT STAGE UNSPECIFIED
     Dates: start: 20050411, end: 20050415
  7. FLUOROURACIL [Suspect]
     Dates: start: 20050502, end: 20050506
  8. PREDNISONE [Concomitant]
     Indication: DYSPNOEA
     Route: 048
  9. PREDNISONE [Concomitant]
     Indication: ILL-DEFINED DISORDER
     Route: 048
  10. LEXAPRO [Concomitant]
     Route: 048
  11. LEVOXYL [Concomitant]
     Indication: HYPOTHYROIDISM
     Route: 048
     Dates: start: 20060112
  12. PEPCID [Concomitant]
     Indication: GASTROOESOPHAGEAL REFLUX DISEASE
     Route: 048

REACTIONS (3)
  - ABSCESS BACTERIAL [None]
  - RASH ERYTHEMATOUS [None]
  - STAPHYLOCOCCAL ABSCESS [None]
